FAERS Safety Report 4882135-2 (Version None)
Quarter: 2006Q1

REPORT INFORMATION
  Report Type: 
  Country: None (occurrence: None)
  Receive Date: 20060117
  Receipt Date: 20051005
  Transmission Date: 20060701
  Serious: Yes (Hospitalization)
  Sender: FDA-Public Use
  Company Number: US-MERCK-0510USA04339

PATIENT
  Age: 60 Year
  Sex: Female
  Weight: 93 kg

DRUGS (4)
  1. VIOXX [Suspect]
     Indication: OSTEOARTHRITIS
     Route: 048
     Dates: start: 20000101, end: 20030101
  2. VIOXX [Suspect]
     Route: 048
     Dates: start: 20000101, end: 20030101
  3. ATENOLOL [Concomitant]
     Route: 065
  4. PREMARIN [Concomitant]
     Route: 065

REACTIONS (3)
  - ARRHYTHMIA [None]
  - CARDIOVASCULAR DISORDER [None]
  - OSTEOARTHRITIS [None]
